FAERS Safety Report 6160997-9 (Version None)
Quarter: 2009Q2

REPORT INFORMATION
  Report Type: 
  Country: None (occurrence: None)
  Receive Date: 20090420
  Receipt Date: 20090321
  Transmission Date: 20091009
  Serious: Yes (Hospitalization)
  Sender: FDA-Public Use
  Company Number: US-PFIZER INC-2008029018

PATIENT
  Sex: Female
  Weight: 54.88 kg

DRUGS (9)
  1. SILDENAFIL CITRATE [Suspect]
     Indication: PULMONARY HYPERTENSION
     Route: 048
     Dates: start: 20060120
  2. FLOLAN [Concomitant]
     Dosage: UNK
     Dates: start: 20040101
  3. SPIRONOLACTONE [Concomitant]
     Dosage: UNK
     Dates: start: 20050101
  4. DIGOXIN [Concomitant]
     Dosage: UNK
     Dates: start: 20040101
  5. AMBIEN [Concomitant]
     Dosage: UNK
     Dates: start: 20051001
  6. LOPERAMIDE [Concomitant]
     Dosage: UNK
     Dates: start: 20051001
  7. LASIX [Concomitant]
     Dosage: UNK
     Dates: start: 20061214
  8. AMBRISENTAN [Concomitant]
     Dosage: UNK
     Dates: start: 20071129
  9. FLONASE [Concomitant]
     Dosage: UNK
     Dates: start: 20080228

REACTIONS (2)
  - CHEST PAIN [None]
  - ELECTROCARDIOGRAM CHANGE [None]
